FAERS Safety Report 11067699 (Version 1)
Quarter: 2015Q2

REPORT INFORMATION
  Report Type: Spontaneous
  Country: US (occurrence: None)
  Receive Date: 20150424
  Receipt Date: 20150424
  Transmission Date: 20150821
  Serious: Yes (Disabling)
  Sender: FDA-Public Use
  Company Number: None

PATIENT
  Age: 78 Year
  Sex: Female
  Weight: 158 kg

DRUGS (17)
  1. INSULIN SYRINGE [Concomitant]
     Dosage: INSULIN SYRINGE-NEEDLE U-100 (INSULIN SYRINGE)
  2. ZOSTRIX ORIGINAL STRENGTH [Concomitant]
     Active Substance: CAPSAICIN
  3. DIABETA [Concomitant]
     Active Substance: GLYBURIDE
     Dosage: 5 MG IN AM
  4. NOVOLIN 70/30 [Concomitant]
     Active Substance: INSULIN HUMAN
     Dosage: INSULIN ISOPHANE + REGULAR (NOVOLIN 70/30) 70-30 INJECTION.
  5. SYNTHROID [Concomitant]
     Active Substance: LEVOTHYROXINE SODIUM
     Dosage: TAKE 1 TABLET BY MOUTH EVERY MORNING BEFORE BREAKFAST
     Route: 048
  6. ASPIRIN. [Concomitant]
     Active Substance: ASPIRIN
     Route: 048
  7. ELASTIC BANDAGES + SUPPORTS (MEDICAL COMPRESSION STOCKING [Concomitant]
  8. HYDRALAZINE HCL [Suspect]
     Active Substance: HYDRALAZINE HYDROCHLORIDE
     Indication: BLOOD PRESSURE INCREASED
     Dosage: 25 MG, 1 PILL, 18TH 3XA DAY CHANGE 25TH 3/25/2XA DAY BY MOUTH
     Route: 048
     Dates: start: 20150318, end: 20150408
  9. COREG [Concomitant]
     Active Substance: CARVEDILOL
     Route: 048
  10. LASIX [Concomitant]
     Active Substance: FUROSEMIDE
     Route: 048
  11. MULTIVITAMIN [Concomitant]
     Active Substance: VITAMINS
     Route: 048
  12. ZETIA [Concomitant]
     Active Substance: EZETIMIBE
     Route: 048
  13. K-TAB [Concomitant]
     Active Substance: POTASSIUM CHLORIDE
     Dosage: TAKE 2 TABLETS BY MOUTH 3 TIMES DAILY
     Route: 048
  14. TIMOPTIC [Concomitant]
     Active Substance: TIMOLOL MALEATE
     Route: 047
  15. GLUCOSE BLOOD DISK [Concomitant]
     Dosage: TEST BLOOOD SUGAR - BREEZE TEST STRIPS
  16. COZAAR [Concomitant]
     Active Substance: LOSARTAN POTASSIUM
     Route: 048
  17. TYLENOL [Concomitant]
     Active Substance: ACETAMINOPHEN

REACTIONS (10)
  - Decreased appetite [None]
  - Chest discomfort [None]
  - Diarrhoea [None]
  - Abdominal discomfort [None]
  - Visual impairment [None]
  - Gastrointestinal haemorrhage [None]
  - Fall [None]
  - Asthenia [None]
  - Dizziness [None]
  - Fatigue [None]

NARRATIVE: CASE EVENT DATE: 20150325
